FAERS Safety Report 6339457-8 (Version None)
Quarter: 2009Q3

REPORT INFORMATION
  Report Type: 
  Country: None (occurrence: None)
  Receive Date: 20090903
  Receipt Date: 20090826
  Transmission Date: 20100115
  Serious: Yes (Hospitalization, Other)
  Sender: FDA-Public Use
  Company Number: CA-ROCHE-631855

PATIENT
  Sex: Male
  Weight: 68 kg

DRUGS (8)
  1. PEG-INTERFERON ALFA 2A (RO 25-8310) [Suspect]
     Indication: HEPATITIS C
     Route: 058
     Dates: start: 20080611, end: 20090401
  2. PEG-INTERFERON ALFA 2A (RO 25-8310) [Suspect]
     Route: 058
     Dates: start: 20090429, end: 20090601
  3. PEG-INTERFERON ALFA 2A (RO 25-8310) [Suspect]
     Route: 058
     Dates: start: 20090601, end: 20090812
  4. RIBAVIRIN [Suspect]
     Indication: HEPATITIS C
     Route: 048
     Dates: start: 20080611, end: 20090429
  5. RIBAVIRIN [Suspect]
     Route: 048
     Dates: start: 20090429
  6. RIBAVIRIN [Suspect]
     Route: 048
     Dates: end: 20090601
  7. RIBAVIRIN [Suspect]
     Route: 048
     Dates: start: 20090601, end: 20090812
  8. METHADONE [Concomitant]
     Dosage: FREQUENCY: DAILY
     Route: 048
     Dates: start: 20040101

REACTIONS (4)
  - ANAEMIA [None]
  - GUILLAIN-BARRE SYNDROME [None]
  - PLATELET COUNT DECREASED [None]
  - PNEUMONIA [None]
